FAERS Safety Report 12250595 (Version 1)
Quarter: 2016Q2

REPORT INFORMATION
  Report Type: Spontaneous
  Country: US (occurrence: US)
  Receive Date: 20160408
  Receipt Date: 20160408
  Transmission Date: 20160815
  Serious: Yes (Death, Hospitalization)
  Sender: FDA-Public Use
  Company Number: US-BIOGEN-2011BI039787

PATIENT
  Age: 55 Year
  Sex: Male
  Weight: 82.17 kg

DRUGS (1)
  1. TYSABRI [Suspect]
     Active Substance: NATALIZUMAB
     Indication: MULTIPLE SCLEROSIS
     Route: 042
     Dates: start: 20080424, end: 20111118

REACTIONS (2)
  - Progressive multifocal leukoencephalopathy [Fatal]
  - Respiratory distress [Unknown]

NARRATIVE: CASE EVENT DATE: 20111014
